FAERS Safety Report 5108008-8 (Version None)
Quarter: 2006Q3

REPORT INFORMATION
  Report Type: 
  Country: None (occurrence: None)
  Receive Date: 20060914
  Receipt Date: 20060907
  Transmission Date: 20061208
  Serious: Yes (Disabling, Other)
  Sender: FDA-Public Use
  Company Number: 2006098033

PATIENT
  Age: 48 Year
  Sex: Female
  Weight: 80 kg

DRUGS (3)
  1. LIPITOR [Suspect]
     Indication: DRUG USE FOR UNKNOWN INDICATION
     Dosage: ORAL
     Route: 048
  2. ATENOLOL [Suspect]
     Indication: HYPERTENSION
     Dosage: 50 MG
  3. ATENOLOL [Suspect]
     Indication: LIPIDS INCREASED
     Dosage: 50 MG

REACTIONS (3)
  - ABDOMINAL PAIN [None]
  - ASTHENIA [None]
  - MUSCLE SPASMS [None]
